FAERS Safety Report 7381130-1 (Version None)
Quarter: 2011Q1

REPORT INFORMATION
  Report Type: 
  Country: None (occurrence: None)
  Receive Date: 20110329
  Receipt Date: 20101130
  Transmission Date: 20110831
  Serious: No
  Sender: FDA-Public Use
  Company Number: US-AMGEN-USASP2010006989

PATIENT
  Sex: Male

DRUGS (3)
  1. SENSIPAR [Suspect]
     Indication: HYPERPARATHYROIDISM SECONDARY
     Dates: start: 20090101
  2. SENSIPAR [Suspect]
     Dosage: 120 MG, UNK
     Dates: start: 20100901
  3. SENSIPAR [Suspect]
     Dosage: 60 MG, UNK

REACTIONS (1)
  - VOMITING [None]
